FAERS Safety Report 6317970-7 (Version None)
Quarter: 2009Q3

REPORT INFORMATION
  Report Type: 
  Country: None (occurrence: None)
  Receive Date: 20090821
  Receipt Date: 20090810
  Transmission Date: 20100115
  Serious: Yes (Other)
  Sender: FDA-Public Use
  Company Number: US-PFIZER INC-2009253793

PATIENT
  Sex: Female

DRUGS (6)
  1. PROVERA [Suspect]
     Indication: HORMONE REPLACEMENT THERAPY
     Dosage: 10 MG, UNK
     Route: 048
     Dates: start: 19940628, end: 19990403
  2. PREMARIN [Suspect]
     Indication: HORMONE REPLACEMENT THERAPY
     Dosage: 0.625 MG, UNK
     Dates: start: 19940628, end: 19990403
  3. PREMPRO [Suspect]
     Indication: HORMONE REPLACEMENT THERAPY
     Dosage: 0.625MG/2.5MG
     Dates: start: 19990403, end: 20000609
  4. VITAMIN E [Concomitant]
     Indication: ANTIOXIDANT THERAPY
     Dosage: 400 IU, UNK
     Dates: start: 19770101
  5. VITAMIN E [Concomitant]
     Indication: PROPHYLAXIS
  6. TUMS [Concomitant]
     Indication: OSTEOPOROSIS
     Dosage: UNK
     Dates: start: 19940101, end: 20020601

REACTIONS (1)
  - BREAST CANCER [None]
